FAERS Safety Report 14297994 (Version 1)
Quarter: 2017Q4

REPORT INFORMATION
  Report Type: Spontaneous
  Country: CH (occurrence: CH)
  Receive Date: 20171218
  Receipt Date: 20171218
  Transmission Date: 20180321
  Serious: Yes (Hospitalization, Other)
  Sender: FDA-Public Use
  Company Number: CH-BAXTER-2017BAX042507

PATIENT
  Age: 57 Year
  Sex: Male

DRUGS (23)
  1. ENDOXAN 1 G [Suspect]
     Active Substance: CYCLOPHOSPHAMIDE
     Indication: TESTIS CANCER
     Dosage: PHARMACEUTICAL FORM UNSPECIFIED, FIRST CYCLE OF R-CHOP THERAPY
     Route: 041
     Dates: start: 20171010, end: 20171010
  2. DOXORUBICIN [Suspect]
     Active Substance: DOXORUBICIN
     Indication: DIFFUSE LARGE B-CELL LYMPHOMA STAGE IV
     Dosage: SECOND CYCLE OF DAY 1 R-CHOP THERAPY, PHARMACEUTICAL FORM: UNSPECIFIED
     Route: 065
     Dates: start: 20171101, end: 20171101
  3. METHOTREXATE. [Suspect]
     Active Substance: METHOTREXATE
     Indication: DIFFUSE LARGE B-CELL LYMPHOMA STAGE IV
     Dosage: WITH SECOND CYCLE DAY 2 OF R-CHOP THERAPY, PHARMACEUTICAL FORM: UNSPECIFIED
     Route: 041
     Dates: start: 20171102, end: 20171102
  4. PREDNISONE. [Suspect]
     Active Substance: PREDNISONE
     Indication: TESTIS CANCER
     Dosage: FIRST CYCLE OF R-CHOP THERAPY
     Route: 065
     Dates: start: 20171010, end: 20171010
  5. MABTHERA [Suspect]
     Active Substance: RITUXIMAB
     Indication: DIFFUSE LARGE B-CELL LYMPHOMA STAGE IV
     Dosage: DOSAGE FORM UNSPECIFIED, SECOND CYCLE DAY 1 OF R-CHOP THERAPY
     Route: 065
     Dates: start: 20171101, end: 20171101
  6. TRAMAL [Suspect]
     Active Substance: TRAMADOL
     Indication: PRODUCT USED FOR UNKNOWN INDICATION
     Dosage: PHARMACEUTICAL FORM UNSPECIFIED
     Route: 065
     Dates: start: 20171106
  7. DAFALGAN [Suspect]
     Active Substance: ACETAMINOPHEN
     Indication: PRODUCT USED FOR UNKNOWN INDICATION
     Dosage: PHARMACEUTICAL FORM UNSPECIFIED
     Route: 065
     Dates: start: 20171106
  8. VINCRISTINE [Suspect]
     Active Substance: VINCRISTINE
     Indication: DIFFUSE LARGE B-CELL LYMPHOMA STAGE IV
     Dosage: SECOND CYCLE OF DAY 1 R-CHOP THERAPY, PHARMACEUTICAL FORM UNSPECIFIED
     Route: 065
     Dates: start: 20171101, end: 20171101
  9. PREDNISONE. [Suspect]
     Active Substance: PREDNISONE
     Indication: DIFFUSE LARGE B-CELL LYMPHOMA STAGE IV
     Dosage: SECOND CYCLE OF R-CHOP THERAPY, FROM DAY 1 TO DAY 5, PHARMACEUTICAL FORM UNSPECIFIED
     Route: 065
     Dates: start: 20171101, end: 20171105
  10. MABTHERA [Suspect]
     Active Substance: RITUXIMAB
     Indication: TESTIS CANCER
     Dosage: FIRST CYCLE OF R-CHOP THERAPY
     Route: 065
     Dates: start: 20171010, end: 20171010
  11. NEULASTA [Suspect]
     Active Substance: PEGFILGRASTIM
     Indication: PRODUCT USED FOR UNKNOWN INDICATION
     Dosage: PHARMACEUTICAL FORM UNSPECIFIED, DURING DAY 1 OF R-CHOP THERAPY
     Route: 065
     Dates: start: 20171101, end: 20171101
  12. ONDANSETRON ODT DRLA [Suspect]
     Active Substance: ONDANSETRON
     Indication: PRODUCT USED FOR UNKNOWN INDICATION
     Dosage: PHARMACEUTICAL FORM UNSPECIFIED
     Route: 065
     Dates: start: 20171106
  13. ENDOXAN 1 G [Suspect]
     Active Substance: CYCLOPHOSPHAMIDE
     Indication: DIFFUSE LARGE B-CELL LYMPHOMA STAGE IV
     Dosage: PHARMACEUTICAL FORM UNSPECIFIED, SECOND CYCLE DAY 1 OF R-CHOP THERAPY
     Route: 041
     Dates: start: 20171101, end: 20171101
  14. NEXIUM [Suspect]
     Active Substance: ESOMEPRAZOLE MAGNESIUM
     Indication: PRODUCT USED FOR UNKNOWN INDICATION
     Dosage: PHARMACEUTICAL FORM UNSPECIFIED
     Route: 048
     Dates: start: 20171106
  15. FOLINIC ACID [Suspect]
     Active Substance: LEUCOVORIN
     Indication: PRODUCT USED FOR UNKNOWN INDICATION
     Dosage: PHARMACEUTICAL FORM: UNSPECIFIED, FROM DAY 3 TO DAY 5
     Route: 065
     Dates: start: 20171103, end: 20171105
  16. METHOTREXATE. [Suspect]
     Active Substance: METHOTREXATE
     Indication: TESTIS CANCER
     Dosage: WITH FIRST CYCLE OF R-CHOP THERAPY
     Route: 041
     Dates: start: 20171010, end: 20171010
  17. GLUCOPHAGE [Suspect]
     Active Substance: METFORMIN HYDROCHLORIDE
     Indication: PRODUCT USED FOR UNKNOWN INDICATION
     Dosage: PHARMACEUTICAL FORM UNSPECIFIED
     Route: 065
     Dates: start: 20171106
  18. FORXIGA [Suspect]
     Active Substance: DAPAGLIFLOZIN
     Indication: PRODUCT USED FOR UNKNOWN INDICATION
     Dosage: PHARMACEUTICAL FORM UNSPECIFIED
     Route: 065
     Dates: start: 20171106, end: 20171106
  19. PASPERTIN [Suspect]
     Active Substance: METOCLOPRAMIDE HYDROCHLORIDE
     Indication: PRODUCT USED FOR UNKNOWN INDICATION
     Dosage: PHARMACEUTICAL FORM UNSPECIFIED
     Route: 065
     Dates: start: 20171106
  20. ZOLPIDEM [Suspect]
     Active Substance: ZOLPIDEM\ZOLPIDEM TARTRATE
     Indication: PRODUCT USED FOR UNKNOWN INDICATION
     Dosage: PHARMACEUTICAL FORM UNSPECIFIED
     Route: 065
     Dates: start: 20171106
  21. SEVIKAR HCT [Suspect]
     Active Substance: AMLODIPINE BESYLATE\HYDROCHLOROTHIAZIDE\OLMESARTAN MEDOXOMIL
     Indication: PRODUCT USED FOR UNKNOWN INDICATION
     Dosage: PHARMACEUTICAL FORM UNSPECIFIED
     Route: 065
     Dates: start: 20171106
  22. DOXORUBICIN [Suspect]
     Active Substance: DOXORUBICIN
     Indication: TESTIS CANCER
     Dosage: FIRST CYCLE OF R-CHOP THERAPY
     Route: 065
     Dates: start: 20171010, end: 20171010
  23. VINCRISTINE [Suspect]
     Active Substance: VINCRISTINE
     Indication: TESTIS CANCER
     Dosage: FIRST CYCLE OF R-CHOP THERAPY
     Route: 065
     Dates: start: 20171010, end: 20171010

REACTIONS (11)
  - Urinary incontinence [Unknown]
  - Haematuria [Unknown]
  - Pollakiuria [Unknown]
  - General physical health deterioration [Unknown]
  - Asthenia [Unknown]
  - Metabolic alkalosis [Unknown]
  - Acute kidney injury [Not Recovered/Not Resolved]
  - Glycosuria [Unknown]
  - Decreased appetite [Unknown]
  - Hypoxia [Unknown]
  - Hyperphosphataemia [Unknown]

NARRATIVE: CASE EVENT DATE: 201711
